FAERS Safety Report 8439853-9 (Version None)
Quarter: 2012Q2

REPORT INFORMATION
  Report Type: 
  Country: None (occurrence: None)
  Receive Date: 20120323
  Receipt Date: 20110609
  Transmission Date: 20120825
  Serious: Yes (Other)
  Sender: FDA-Public Use
  Company Number: 163-21880-11061563

PATIENT
  Sex: Female

DRUGS (3)
  1. REVLIMID [Suspect]
     Indication: MULTIPLE MYELOMA
     Dosage: 15 MG, DAILY X 21 DAYS, PO, 15 MG, PO, 10 MG, DAILY X 21 DAYS, PO
     Route: 048
     Dates: start: 20110505
  2. REVLIMID [Suspect]
     Indication: MULTIPLE MYELOMA
     Dosage: 15 MG, DAILY X 21 DAYS, PO, 15 MG, PO, 10 MG, DAILY X 21 DAYS, PO
     Route: 048
     Dates: start: 20100501
  3. REVLIMID [Suspect]
     Indication: MULTIPLE MYELOMA
     Dosage: 15 MG, DAILY X 21 DAYS, PO, 15 MG, PO, 10 MG, DAILY X 21 DAYS, PO
     Route: 048
     Dates: start: 20101201

REACTIONS (2)
  - FATIGUE [None]
  - THROMBOSIS [None]
